FAERS Safety Report 7152820-0 (Version None)
Quarter: 2010Q4

REPORT INFORMATION
  Report Type: 
  Country: None (occurrence: None)
  Receive Date: 20101213
  Receipt Date: 20101130
  Transmission Date: 20110411
  Serious: Yes (Hospitalization)
  Sender: FDA-Public Use
  Company Number: PHHY2010AR81469

PATIENT
  Sex: Male

DRUGS (2)
  1. DIOVAN [Suspect]
     Indication: HYPERTENSION
     Dosage: 80 MG (2 TABLETS DAILY)
     Dates: start: 20000101, end: 20100204
  2. DIOVAN [Suspect]
     Dosage: 80 MG (2 TABLETS DAILY)
     Dates: start: 20100207

REACTIONS (4)
  - CARDIAC INFECTION [None]
  - CORONARY ARTERIAL STENT INSERTION [None]
  - HIP SURGERY [None]
  - VENOUS OCCLUSION [None]
